FAERS Safety Report 24715286 (Version 1)
Quarter: 2024Q4

REPORT INFORMATION
  Report Type: Spontaneous
  Country: CN (occurrence: CN)
  Receive Date: 20241210
  Receipt Date: 20241210
  Transmission Date: 20250114
  Serious: Yes (Life-Threatening, Hospitalization)
  Sender: ROCHE
  Company Number: CN-ROCHE-10000149874

PATIENT
  Age: 34 Year
  Sex: Female
  Weight: 56.7 kg

DRUGS (6)
  1. BEVACIZUMAB [Suspect]
     Active Substance: BEVACIZUMAB
     Indication: Rectal adenocarcinoma
     Route: 042
     Dates: start: 20241107, end: 20241108
  2. SINTILIMAB [Suspect]
     Active Substance: SINTILIMAB
     Indication: Rectal adenocarcinoma
     Route: 042
     Dates: start: 20241107, end: 20241108
  3. SINTILIMAB [Suspect]
     Active Substance: SINTILIMAB
     Route: 042
  4. CAPECITABINE [Suspect]
     Active Substance: CAPECITABINE
     Indication: Rectal adenocarcinoma
     Route: 048
     Dates: start: 20241107, end: 20241108
  5. OXALIPLATIN [Suspect]
     Active Substance: OXALIPLATIN
     Indication: Rectal adenocarcinoma
     Route: 042
     Dates: start: 20241107, end: 20241108
  6. SODIUM CHLORIDE [Concomitant]
     Active Substance: SODIUM CHLORIDE
     Indication: Rectal adenocarcinoma
     Route: 042
     Dates: start: 20241107, end: 20241108

REACTIONS (1)
  - Hepatic function abnormal [Unknown]

NARRATIVE: CASE EVENT DATE: 20241130
